FAERS Safety Report 9720887 (Version 1)
Quarter: 2013Q4

REPORT INFORMATION
  Report Type: Spontaneous
  Country: GB (occurrence: GB)
  Receive Date: 20131129
  Receipt Date: 20131129
  Transmission Date: 20140711
  Serious: Yes (Life-Threatening, Hospitalization, Other)
  Sender: FDA-Public Use
  Company Number: GB-SA-2013SA120908

PATIENT
  Age: 68 Year
  Sex: Female

DRUGS (11)
  1. NAPROXEN [Suspect]
     Indication: BACK PAIN
     Route: 048
     Dates: start: 20131018, end: 20131108
  2. CLOPIDOGREL BISULFATE [Suspect]
     Indication: PERIPHERAL VASCULAR DISORDER
     Route: 048
     Dates: start: 2011, end: 20131108
  3. SALBUTAMOL [Concomitant]
  4. MACROGOL [Concomitant]
  5. ADALAT LA [Concomitant]
  6. ALENDRONIC ACID [Concomitant]
  7. ATORVASTATIN [Concomitant]
  8. BENDROFLUMETHIAZIDE [Concomitant]
  9. CARBOMER [Concomitant]
  10. CHOLECALCIFEROL [Concomitant]
  11. CALCIUM CARBONATE [Concomitant]

REACTIONS (10)
  - Oesophagitis [Recovering/Resolving]
  - Malaise [Unknown]
  - Duodenitis [Unknown]
  - Wound secretion [Unknown]
  - Gastric ulcer haemorrhage [Recovering/Resolving]
  - Anaemia [Unknown]
  - Haematemesis [Unknown]
  - Melaena [Unknown]
  - Gastric ulcer [Unknown]
  - Abdominal pain [Unknown]
